FAERS Safety Report 10706174 (Version 2)
Quarter: 2015Q1

REPORT INFORMATION
  Report Type: Report from Study
  Country: AU (occurrence: AU)
  Receive Date: 20150113
  Receipt Date: 20150225
  Transmission Date: 20150721
  Serious: Yes (Hospitalization)
  Sender: FDA-Public Use
  Company Number: AU-AMGEN-AUSCT2015001725

PATIENT
  Age: 76 Year
  Sex: Male
  Weight: 61.9 kg

DRUGS (3)
  1. PANITUMUMAB [Suspect]
     Active Substance: PANITUMUMAB
     Indication: COLORECTAL CANCER METASTATIC
     Dosage: 330 MG, CYCLICAL
     Route: 042
     Dates: start: 20141211
  2. IRINOTECAN [Concomitant]
     Active Substance: IRINOTECAN
     Indication: COLORECTAL CANCER METASTATIC
     Dosage: 225 MG, CYCLICAL
     Route: 042
     Dates: start: 20141211
  3. EVEROLIMUS [Concomitant]
     Active Substance: EVEROLIMUS
     Indication: COLORECTAL CANCER METASTATIC

REACTIONS (1)
  - Hyperkalaemia [Recovered/Resolved]

NARRATIVE: CASE EVENT DATE: 20141230
